FAERS Safety Report 12879663 (Version 1)
Quarter: 2016Q4

REPORT INFORMATION
  Report Type: Spontaneous
  Country: US (occurrence: US)
  Receive Date: 20161025
  Receipt Date: 20161025
  Transmission Date: 20170207
  Serious: No
  Sender: FDA-Public Use
  Company Number: US-JNJFOC-20161019017

PATIENT
  Sex: Male
  Weight: 72.58 kg

DRUGS (2)
  1. TRAMADOL ER [Suspect]
     Active Substance: TRAMADOL HYDROCHLORIDE
     Indication: PAIN
     Dosage: 2-3 TIMES IN A DAY
     Route: 048
     Dates: start: 2006
  2. DEPO TESTOSTERONE [Concomitant]
     Active Substance: TESTOSTERONE
     Dosage: SHOT
     Route: 065

REACTIONS (1)
  - Loss of libido [Not Recovered/Not Resolved]
